FAERS Safety Report 7352462-8 (Version None)
Quarter: 2011Q1

REPORT INFORMATION
  Report Type: 
  Country: None (occurrence: None)
  Receive Date: 20110301
  Receipt Date: 20101011
  Transmission Date: 20110831
  Serious: Yes (Hospitalization)
  Sender: FDA-Public Use
  Company Number: DSA_44086_2010

PATIENT
  Sex: Female

DRUGS (2)
  1. CARDIZEM CD [Suspect]
     Indication: PRODUCT USED FOR UNKNOWN INDICATION
     Dosage: (360 MG QD ORAL)
     Route: 048
     Dates: start: 20101002
  2. OSCAL /00108001/ [Concomitant]

REACTIONS (1)
  - HEART RATE INCREASED [None]
